FAERS Safety Report 24343987 (Version 3)
Quarter: 2025Q1

REPORT INFORMATION
  Report Type: Spontaneous
  Country: US (occurrence: US)
  Receive Date: 20240920
  Receipt Date: 20250318
  Transmission Date: 20250408
  Serious: No
  Sender: SANOFI AVENTIS
  Company Number: US-SA-2024SA267992

PATIENT
  Age: 59 Year
  Sex: Female

DRUGS (5)
  1. DUPIXENT [Suspect]
     Active Substance: DUPILUMAB
     Indication: Dermatitis atopic
     Route: 058
     Dates: start: 20240811, end: 20240811
  2. DUPIXENT [Suspect]
     Active Substance: DUPILUMAB
     Indication: Alopecia totalis
     Dosage: 300 MG, QOW
     Route: 058
     Dates: start: 20240825
  3. DUPIXENT [Suspect]
     Active Substance: DUPILUMAB
     Indication: Alopecia areata
  4. DUPIXENT [Suspect]
     Active Substance: DUPILUMAB
     Indication: Alopecia universalis
  5. OLUMIANT [Concomitant]
     Active Substance: BARICITINIB

REACTIONS (2)
  - Product use in unapproved indication [Unknown]
  - Drug ineffective [Unknown]

NARRATIVE: CASE EVENT DATE: 20240811
